FAERS Safety Report 10175423 (Version 2)
Quarter: 2014Q2

REPORT INFORMATION
  Report Type: Spontaneous
  Country: US (occurrence: US)
  Receive Date: 20140515
  Receipt Date: 20140515
  Transmission Date: 20141212
  Serious: Yes (Other)
  Sender: FDA-Public Use
  Company Number: US-TAKEDA-2014TUS002968

PATIENT
  Sex: 0

DRUGS (7)
  1. ACTOS [Suspect]
     Indication: TYPE 2 DIABETES MELLITUS
     Dosage: 30 MG, QD
     Dates: start: 20070821, end: 20081206
  2. METFORMIN [Concomitant]
     Dosage: UNK
     Dates: start: 1999
  3. AVANDIA [Concomitant]
     Dosage: DURATION- FOR SHORT TIME
     Dates: start: 2000
  4. GLUCOPHAGE [Concomitant]
     Dosage: UNK
     Dates: start: 1998
  5. HUMALOG [Concomitant]
     Dosage: 40-20-20
  6. LANTUS [Concomitant]
     Dosage: UNK
     Dates: start: 2002
  7. GLUCOTROL [Concomitant]
     Dosage: DURATION - TOOK FOR SHORT TIME

REACTIONS (3)
  - Kidney infection [Unknown]
  - Cystitis [Unknown]
  - Bladder cancer [Unknown]
